FAERS Safety Report 21666407 (Version 1)
Quarter: 2022Q4

REPORT INFORMATION
  Report Type: Spontaneous
  Country: SE (occurrence: SE)
  Receive Date: 20221201
  Receipt Date: 20221201
  Transmission Date: 20230113
  Serious: Yes (Other)
  Sender: FDA-Public Use
  Company Number: None

PATIENT
  Age: 67 Year
  Sex: Female
  Weight: 63 kg

DRUGS (2)
  1. OXAZEPAM [Suspect]
     Active Substance: OXAZEPAM
     Indication: Pain
     Dosage: FORM STRENGTH : 10 MG, UNIT DOSE : 10 MG, FREQUENCY TIME : 1 AS REQUIRED
     Route: 065
     Dates: start: 20221031, end: 20221031
  2. OXYCODONE HYDROCHLORIDE [Suspect]
     Active Substance: OXYCODONE HYDROCHLORIDE
     Indication: Pain
     Dosage: FORM STRENGTH : 10 MG, UNIT DOSE : 10 MG, FREQUENCY TIME : 1 AS REQUIRED
     Route: 065
     Dates: start: 20221031, end: 20221031

REACTIONS (2)
  - Somnolence [Recovered/Resolved]
  - Confusional state [Recovered/Resolved]

NARRATIVE: CASE EVENT DATE: 20221031
